FAERS Safety Report 5577036-0 (Version None)
Quarter: 2007Q4

REPORT INFORMATION
  Report Type: 
  Country: None (occurrence: None)
  Receive Date: 20071228
  Receipt Date: 20071206
  Transmission Date: 20080405
  Serious: No
  Sender: FDA-Public Use
  Company Number: US-BOEHRINGER INGELHEIM PHARMACEUTICALS, INC.-2007-BP-25408BP

PATIENT
  Age: 55 Year
  Sex: Female

DRUGS (9)
  1. SPIRIVA [Suspect]
     Indication: CHRONIC OBSTRUCTIVE PULMONARY DISEASE
     Dates: start: 20060125, end: 20071115
  2. NOVOLIN 50/50 [Concomitant]
  3. CRESTOR [Concomitant]
  4. MICARDIS [Concomitant]
  5. ASPIRIN [Concomitant]
  6. ZOLOFT [Concomitant]
  7. SYNTHROID [Concomitant]
  8. LYRICA [Concomitant]
  9. BUMEX [Concomitant]

REACTIONS (1)
  - URINARY TRACT INFECTION [None]
